FAERS Safety Report 11650336 (Version 2)
Quarter: 2015Q4

REPORT INFORMATION
  Report Type: Report from Study
  Country: CA (occurrence: CA)
  Receive Date: 20151021
  Receipt Date: 20151116
  Transmission Date: 20160304
  Serious: Yes (Hospitalization, Other)
  Sender: FDA-Public Use
  Company Number: CA-ABBVIE-15K-028-1472610-00

PATIENT
  Sex: Female

DRUGS (1)
  1. HUMIRA [Suspect]
     Active Substance: ADALIMUMAB
     Indication: PSORIASIS
     Route: 058
     Dates: start: 20150714, end: 201509

REACTIONS (5)
  - Lethargy [Not Recovered/Not Resolved]
  - Blood cortisol decreased [Unknown]
  - Jaundice [Unknown]
  - Respiratory disorder [Not Recovered/Not Resolved]
  - Bile duct obstruction [Unknown]

NARRATIVE: CASE EVENT DATE: 2015
